FAERS Safety Report 9113172 (Version 1)
Quarter: 2013Q1

REPORT INFORMATION
  Report Type: Report from Study
  Country: DE (occurrence: DE)
  Receive Date: 20130211
  Receipt Date: 20130211
  Transmission Date: 20140127
  Serious: Yes (Death, Other)
  Sender: FDA-Public Use
  Company Number: DE-ROCHE-1186855

PATIENT
  Sex: Male

DRUGS (7)
  1. TARCEVA [Suspect]
     Indication: NON-SMALL CELL LUNG CANCER
     Route: 048
     Dates: start: 20060209, end: 20070315
  2. AVASTIN [Suspect]
     Indication: NON-SMALL CELL LUNG CANCER
     Route: 042
     Dates: start: 20080117
  3. BENDAMUSTINE [Suspect]
     Indication: NON-SMALL CELL LUNG CANCER
     Route: 065
     Dates: start: 20080117
  4. ZOMETA [Concomitant]
     Route: 065
     Dates: start: 20050906
  5. GEMCITABINE [Concomitant]
     Route: 065
     Dates: start: 20070515, end: 20070516
  6. CARBOPLATIN [Concomitant]
     Route: 065
     Dates: start: 20070614, end: 20070725
  7. SUTENT [Concomitant]

REACTIONS (3)
  - Malignant neoplasm progression [Fatal]
  - Metastases to adrenals [Unknown]
  - Rash [Not Recovered/Not Resolved]
